FAERS Safety Report 9869632 (Version 1)
Quarter: 2014Q1

REPORT INFORMATION
  Report Type: Spontaneous
  Country: RO (occurrence: None)
  Receive Date: 20140203
  Receipt Date: 20140203
  Transmission Date: 20141002
  Serious: Yes (Other)
  Sender: FDA-Public Use
  Company Number: RO-ALKEM-000481

PATIENT
  Age: 42 Year
  Sex: Male

DRUGS (7)
  1. MYCOPHENOLATE MOFETIL [Suspect]
     Indication: IMMUNOSUPPRESSANT DRUG THERAPY
  2. SIROLIMUS [Suspect]
     Indication: IMMUNOSUPPRESSANT DRUG THERAPY
  3. BASILIXIMAB [Suspect]
  4. CAPECITABINE [Concomitant]
  5. OXALIPLATIN [Concomitant]
  6. LAMIVUDINE [Concomitant]
  7. HEPATITIS B IMMUNOGLOBULIN [Concomitant]

REACTIONS (2)
  - Metastases to lung [None]
  - Retroperitoneal mass [None]
